FAERS Safety Report 10578929 (Version 1)
Quarter: 2014Q4

REPORT INFORMATION
  Report Type: Spontaneous
  Country: US (occurrence: US)
  Receive Date: 20141112
  Receipt Date: 20141112
  Transmission Date: 20150529
  Serious: No
  Sender: FDA-Public Use
  Company Number: US-PFIZER INC-2014310967

PATIENT
  Age: 50 Year
  Sex: Male
  Weight: 82 kg

DRUGS (6)
  1. NORCO [Suspect]
     Active Substance: ACETAMINOPHEN\HYDROCODONE BITARTRATE
     Dosage: UNK
  2. GABAPENTIN. [Suspect]
     Active Substance: GABAPENTIN
     Indication: LIGAMENT RUPTURE
     Dosage: 100 MG, 3X/DAY
  3. GABAPENTIN. [Suspect]
     Active Substance: GABAPENTIN
     Dosage: 200 MG, DAILY
  4. OXYCODONE [Suspect]
     Active Substance: OXYCODONE
     Dosage: UNK, 3X/DAY (EVERY 8 HOURS, 10/325 )
  5. GABAPENTIN. [Suspect]
     Active Substance: GABAPENTIN
     Indication: NEURALGIA
     Dosage: 400 MG, DAILY
  6. FENTANYL. [Suspect]
     Active Substance: FENTANYL
     Dosage: 12 UNK, UNK

REACTIONS (1)
  - Drug ineffective [Unknown]
